FAERS Safety Report 5731795-2 (Version None)
Quarter: 2008Q2

REPORT INFORMATION
  Report Type: 
  Country: None (occurrence: None)
  Receive Date: 20080506
  Receipt Date: 20080506
  Transmission Date: 20081010
  Serious: No
  Sender: FDA-Public Use
  Company Number: None

PATIENT
  Age: 56 Year

DRUGS (1)
  1. ACITRETIN [Suspect]
     Indication: PSORIASIS
     Dosage: MG PO
     Route: 048
     Dates: end: 20060522

REACTIONS (9)
  - CONDITION AGGRAVATED [None]
  - DRUG HYPERSENSITIVITY [None]
  - EXCORIATION [None]
  - PRURITUS [None]
  - PSORIASIS [None]
  - RASH [None]
  - URTICARIA [None]
  - VISION BLURRED [None]
  - VISUAL ACUITY REDUCED [None]
